FAERS Safety Report 6462034-5 (Version None)
Quarter: 2009Q4

REPORT INFORMATION
  Report Type: 
  Country: None (occurrence: None)
  Receive Date: 20091130
  Receipt Date: 20091113
  Transmission Date: 20100525
  Serious: Yes (Hospitalization)
  Sender: FDA-Public Use
  Company Number: PHHY2009AU35493

PATIENT
  Sex: Male

DRUGS (1)
  1. CLOZARIL [Suspect]
     Dosage: 700 UG, UNK
     Dates: start: 20060308, end: 20091101

REACTIONS (2)
  - MENTAL DISORDER [None]
  - THERAPY CESSATION [None]
